FAERS Safety Report 21553835 (Version 1)
Quarter: 2022Q4

REPORT INFORMATION
  Report Type: Spontaneous
  Country: US (occurrence: US)
  Receive Date: 20221104
  Receipt Date: 20221104
  Transmission Date: 20230113
  Serious: No
  Sender: FDA-Public Use
  Company Number: US-BEH-2022151398

PATIENT
  Age: 27 Year
  Sex: Male

DRUGS (2)
  1. IDELVION [Suspect]
     Active Substance: COAGULATION FACTOR IX RECOMBINANT HUMAN
     Indication: Factor IX deficiency
     Dosage: 43 INTERNATIONAL UNIT/KILOGRAM
     Route: 065
  2. IDELVION [Suspect]
     Active Substance: COAGULATION FACTOR IX RECOMBINANT HUMAN
     Indication: Factor IX deficiency
     Dosage: 43 INTERNATIONAL UNIT/KILOGRAM
     Route: 065

REACTIONS (3)
  - Autoinflammatory disease [Not Recovered/Not Resolved]
  - Coagulation factor IX level increased [Unknown]
  - Arthropathy [Unknown]

NARRATIVE: CASE EVENT DATE: 20210101
